FAERS Safety Report 7813686-6 (Version None)
Quarter: 2011Q4

REPORT INFORMATION
  Report Type: 
  Country: None (occurrence: None)
  Receive Date: 20111014
  Receipt Date: 20111003
  Transmission Date: 20120403
  Serious: Yes (Death, Other)
  Sender: FDA-Public Use
  Company Number: US-ELI_LILLY_AND_COMPANY-US201106005627

PATIENT
  Sex: Male
  Weight: 58 kg

DRUGS (4)
  1. FORTEO [Suspect]
     Indication: OSTEOPOROSIS
     Dosage: 20 UG, QD
     Route: 058
     Dates: start: 20110609
  2. COUMADIN [Concomitant]
     Dosage: 5 MG, UNK
  3. FORTEO [Suspect]
     Dosage: 20 UG, QD
     Route: 058
  4. COUMADIN [Concomitant]
     Dosage: 2.5 MG, UNK

REACTIONS (6)
  - CHRONIC OBSTRUCTIVE PULMONARY DISEASE [None]
  - BIOPSY LIVER [None]
  - VOMITING [None]
  - ANTICOAGULATION DRUG LEVEL BELOW THERAPEUTIC [None]
  - NAUSEA [None]
  - PNEUMOTHORAX TRAUMATIC [None]
